FAERS Safety Report 14907970 (Version 2)
Quarter: 2018Q2

REPORT INFORMATION
  Report Type: Spontaneous
  Country: RU (occurrence: RU)
  Receive Date: 20180517
  Receipt Date: 20180531
  Transmission Date: 20180711
  Serious: Yes (Other)
  Sender: FDA-Public Use
  Company Number: PHHY2018RU008879

PATIENT
  Age: 49 Year
  Sex: Female

DRUGS (3)
  1. NEVANAC [Suspect]
     Active Substance: NEPAFENAC
     Indication: RETINAL DYSTROPHY
     Dosage: 1 GTT, TID
     Route: 047
     Dates: start: 20180403, end: 20180430
  2. TRUSOPT [Concomitant]
     Active Substance: DORZOLAMIDE HYDROCHLORIDE
     Indication: RETINAL DYSTROPHY
     Dosage: UNK, BID
     Route: 065
     Dates: start: 20180403
  3. DIPROSPAN [Concomitant]
     Active Substance: BETAMETHASONE DIPROPIONATE\BETAMETHASONE SODIUM PHOSPHATE
     Indication: RETINAL DYSTROPHY
     Dosage: UNK
     Route: 065
     Dates: start: 20180430

REACTIONS (4)
  - Visual impairment [Recovering/Resolving]
  - Headache [Recovering/Resolving]
  - Eye pain [Not Recovered/Not Resolved]
  - Blood pressure increased [Recovering/Resolving]

NARRATIVE: CASE EVENT DATE: 20180427
